FAERS Safety Report 4635965-6 (Version None)
Quarter: 2005Q1

REPORT INFORMATION
  Report Type: 
  Country: None (occurrence: None)
  Receive Date: 20050325
  Receipt Date: 20050119
  Transmission Date: 20050727
  Serious: No
  Sender: FDA-Public Use
  Company Number: USA041286741

PATIENT
  Age: 70 Year
  Sex: Female
  Weight: 51 kg

DRUGS (2)
  1. FORTEO [Suspect]
     Indication: OSTEOPOROSIS
     Dosage: 20 UG DAY
     Dates: start: 20041101
  2. AREDIA [Concomitant]

REACTIONS (11)
  - ARTHRITIS [None]
  - BLOOD BLISTER [None]
  - CAPILLARY DISORDER [None]
  - DIZZINESS [None]
  - HEADACHE [None]
  - INJECTION SITE ERYTHEMA [None]
  - INJECTION SITE HAEMORRHAGE [None]
  - INJECTION SITE MASS [None]
  - INJECTION SITE PAIN [None]
  - MUSCLE SPASMS [None]
  - OEDEMA [None]
